FAERS Safety Report 17418544 (Version 3)
Quarter: 2020Q2

REPORT INFORMATION
  Report Type: Spontaneous
  Country: CZ (occurrence: CZ)
  Receive Date: 20200214
  Receipt Date: 20200520
  Transmission Date: 20200713
  Serious: Yes (Other)
  Sender: FDA-Public Use
  Company Number: CZ-BAUSCH-BL-2020-004385

PATIENT
  Age: 70 Year
  Sex: Male

DRUGS (9)
  1. FOLINIC ACID [Suspect]
     Active Substance: LEUCOVORIN
     Dosage: 13 CYCLES IN MFOLFOX6 REGIMEN
     Route: 065
     Dates: start: 201801, end: 201801
  2. CETUXIMAB. [Suspect]
     Active Substance: CETUXIMAB
     Dosage: QCY
     Route: 065
     Dates: start: 201801, end: 201801
  3. CAPECITABINE. [Concomitant]
     Active Substance: CAPECITABINE
     Indication: PRODUCT USED FOR UNKNOWN INDICATION
  4. OXALIPLATIN. [Suspect]
     Active Substance: OXALIPLATIN
     Indication: RECTOSIGMOID CANCER
     Dosage: 7 CYCLES IN MFOLFOX6 REGIMEN
     Route: 042
     Dates: start: 2017, end: 2017
  5. FLUOROURACIL. [Suspect]
     Active Substance: FLUOROURACIL
     Indication: RECTOSIGMOID CANCER
     Dosage: QCY
     Route: 065
     Dates: start: 201801, end: 201801
  6. OXALIPLATIN. [Suspect]
     Active Substance: OXALIPLATIN
     Dosage: QCY
     Route: 065
     Dates: start: 201801, end: 201801
  7. OXALIPLATIN. [Suspect]
     Active Substance: OXALIPLATIN
     Dosage: QCY
     Route: 065
  8. FOLINIC ACID [Suspect]
     Active Substance: LEUCOVORIN
     Indication: RECTOSIGMOID CANCER
     Dosage: 13 CYCLES IN MFOLFOX6 REGIMEN
     Route: 065
     Dates: start: 2017, end: 2017
  9. CETUXIMAB. [Suspect]
     Active Substance: CETUXIMAB
     Indication: RECTOSIGMOID CANCER
     Dosage: QCY
     Route: 065
     Dates: end: 201801

REACTIONS (5)
  - Skin toxicity [Recovered/Resolved]
  - Decreased appetite [Recovered/Resolved]
  - Neurotoxicity [Recovered/Resolved]
  - Weight decreased [Recovered/Resolved]
  - Conjunctivitis [Recovered/Resolved]
